FAERS Safety Report 24175921 (Version 2)
Quarter: 2024Q4

REPORT INFORMATION
  Report Type: Spontaneous
  Country: JP (occurrence: JP)
  Receive Date: 20240806
  Receipt Date: 20241009
  Transmission Date: 20250115
  Serious: Yes (Hospitalization, Other)
  Sender: AMGEN
  Company Number: JP-TAKEDA-2024TJP011496

PATIENT
  Sex: Male

DRUGS (1)
  1. VECTIBIX [Suspect]
     Active Substance: PANITUMUMAB
     Indication: Colon cancer
     Dosage: UNK
     Route: 042
     Dates: start: 20240101

REACTIONS (2)
  - Hospitalisation [Unknown]
  - Vasculitis [Recovering/Resolving]
